FAERS Safety Report 10633971 (Version 2)
Quarter: 2014Q4

REPORT INFORMATION
  Report Type: Spontaneous
  Country: PL (occurrence: PL)
  Receive Date: 20141205
  Receipt Date: 20141212
  Transmission Date: 20150529
  Serious: Yes (Death)
  Sender: FDA-Public Use
  Company Number: PL-TEVA-525866ISR

PATIENT
  Age: 34 Year
  Sex: Male

DRUGS (2)
  1. G-CSF (TEVAGRASTIM/RATIOGRASTIM) [Suspect]
     Active Substance: FILGRASTIM
     Dosage: 37126000 IU (INTERNATIONAL UNIT) DAILY;
     Route: 058
     Dates: start: 20141015, end: 20141015
  2. G-CSF (TEVAGRASTIM/RATIOGRASTIM) [Suspect]
     Active Substance: FILGRASTIM
     Indication: NEUTROPENIA
     Dosage: 36745000 IU (INTERNATIONAL UNIT) DAILY; EQUAL DAILY DOSE 37 THOUSAND IU
     Route: 058
     Dates: start: 20141014, end: 20141014

REACTIONS (1)
  - White blood cell count increased [Fatal]

NARRATIVE: CASE EVENT DATE: 20141015
